FAERS Safety Report 20673736 (Version 2)
Quarter: 2022Q2

REPORT INFORMATION
  Report Type: Spontaneous
  Country: GB (occurrence: GB)
  Receive Date: 20220405
  Receipt Date: 20220509
  Transmission Date: 20220721
  Serious: Yes (Other)
  Sender: FDA-Public Use
  Company Number: GB-MHRA-MED-202203221016173920-WYDWL

PATIENT
  Age: 24 Year
  Sex: Male

DRUGS (1)
  1. DOXYCYCLINE [Suspect]
     Active Substance: DOXYCYCLINE
     Indication: Chlamydia test positive
     Dosage: UNK
     Dates: start: 20220103, end: 20220110

REACTIONS (4)
  - Medication error [Unknown]
  - Semen analysis abnormal [Not Recovered/Not Resolved]
  - Semen discolouration [Not Recovered/Not Resolved]
  - Infertility [Unknown]

NARRATIVE: CASE EVENT DATE: 20220104
